FAERS Safety Report 10431943 (Version 3)
Quarter: 2014Q4

REPORT INFORMATION
  Report Type: Spontaneous
  Country: AU (occurrence: AU)
  Receive Date: 20140905
  Receipt Date: 20141117
  Transmission Date: 20150528
  Serious: Yes (Other)
  Sender: FDA-Public Use
  Company Number: AU-009507513-1409AUS001526

PATIENT
  Age: 52 Year
  Sex: Male
  Weight: 84 kg

DRUGS (3)
  1. RIBAVIRIN. [Suspect]
     Active Substance: RIBAVIRIN
     Indication: HEPATITIS C
     Dosage: 1200MG, QD
     Route: 048
     Dates: start: 20140506, end: 20140908
  2. VICTRELIS [Suspect]
     Active Substance: BOCEPREVIR
     Indication: HEPATITIS C
     Dosage: 800 MG, TID
     Route: 048
     Dates: start: 20140603, end: 20140908
  3. PEGASYS [Suspect]
     Active Substance: PEGINTERFERON ALFA-2A
     Indication: HEPATITIS C
     Dosage: 180 MICROGRAM, QW
     Route: 058
     Dates: start: 20140506, end: 20140908

REACTIONS (1)
  - Retinal exudates [Recovered/Resolved]

NARRATIVE: CASE EVENT DATE: 20140903
